FAERS Safety Report 4533787-8 (Version None)
Quarter: 2004Q4

REPORT INFORMATION
  Report Type: 
  Country: None (occurrence: None)
  Receive Date: 20041206
  Receipt Date: 20041015
  Transmission Date: 20050328
  Serious: No
  Sender: FDA-Public Use
  Company Number: USA041081481

PATIENT
  Age: 30 Year
  Sex: Female

DRUGS (3)
  1. STRATTERA [Suspect]
  2. CYMBALTA [Suspect]
     Dates: end: 20041001
  3. PAXIL [Concomitant]

REACTIONS (2)
  - ALOPECIA [None]
  - FATIGUE [None]
